FAERS Safety Report 25513035 (Version 3)
Quarter: 2025Q3

REPORT INFORMATION
  Report Type: Spontaneous
  Country: US (occurrence: US)
  Receive Date: 20250703
  Receipt Date: 20250804
  Transmission Date: 20251020
  Serious: No
  Sender: MYLAN
  Company Number: US-MYLANLABS-2025M1055491

PATIENT
  Age: 32 Year
  Sex: Male
  Weight: 81.65 kg

DRUGS (12)
  1. LISDEXAMFETAMINE DIMESYLATE [Suspect]
     Active Substance: LISDEXAMFETAMINE DIMESYLATE
     Indication: Attention deficit hyperactivity disorder
     Dosage: 60 MILLIGRAM, QD(PER DAY, EVERY MORNING)
     Dates: start: 20250625, end: 20250629
  2. LISDEXAMFETAMINE DIMESYLATE [Suspect]
     Active Substance: LISDEXAMFETAMINE DIMESYLATE
     Dosage: 60 MILLIGRAM, QD(PER DAY, EVERY MORNING)
     Route: 048
     Dates: start: 20250625, end: 20250629
  3. LISDEXAMFETAMINE DIMESYLATE [Suspect]
     Active Substance: LISDEXAMFETAMINE DIMESYLATE
     Dosage: 60 MILLIGRAM, QD(PER DAY, EVERY MORNING)
     Route: 048
     Dates: start: 20250625, end: 20250629
  4. LISDEXAMFETAMINE DIMESYLATE [Suspect]
     Active Substance: LISDEXAMFETAMINE DIMESYLATE
     Dosage: 60 MILLIGRAM, QD(PER DAY, EVERY MORNING)
     Dates: start: 20250625, end: 20250629
  5. BUPROPION [Concomitant]
     Active Substance: BUPROPION
     Indication: Attention deficit hyperactivity disorder
     Dosage: 300 MILLIGRAM, QD(ONCE A DAY)
     Dates: start: 2022
  6. BUPROPION [Concomitant]
     Active Substance: BUPROPION
     Indication: Depression
     Dosage: 300 MILLIGRAM, QD(ONCE A DAY)
     Route: 065
     Dates: start: 2022
  7. BUPROPION [Concomitant]
     Active Substance: BUPROPION
     Dosage: 300 MILLIGRAM, QD(ONCE A DAY)
     Route: 065
     Dates: start: 2022
  8. BUPROPION [Concomitant]
     Active Substance: BUPROPION
     Dosage: 300 MILLIGRAM, QD(ONCE A DAY)
     Dates: start: 2022
  9. LAMOTRIGINE [Concomitant]
     Active Substance: LAMOTRIGINE
     Indication: Depression
     Dosage: 100 MILLIGRAM, QD(ONCE A DAY)
     Dates: start: 2022
  10. LAMOTRIGINE [Concomitant]
     Active Substance: LAMOTRIGINE
     Dosage: 100 MILLIGRAM, QD(ONCE A DAY)
     Route: 065
     Dates: start: 2022
  11. LAMOTRIGINE [Concomitant]
     Active Substance: LAMOTRIGINE
     Dosage: 100 MILLIGRAM, QD(ONCE A DAY)
     Route: 065
     Dates: start: 2022
  12. LAMOTRIGINE [Concomitant]
     Active Substance: LAMOTRIGINE
     Dosage: 100 MILLIGRAM, QD(ONCE A DAY)
     Dates: start: 2022

REACTIONS (11)
  - Condition aggravated [Unknown]
  - Adverse drug reaction [Unknown]
  - Vertigo [Unknown]
  - Fatigue [Recovered/Resolved]
  - Brain fog [Recovered/Resolved]
  - Palpitations [Recovered/Resolved]
  - Dizziness [Recovered/Resolved]
  - Headache [Recovered/Resolved]
  - Product substitution issue [Unknown]
  - Drug ineffective [Unknown]
  - Therapeutic response changed [Unknown]

NARRATIVE: CASE EVENT DATE: 20250625
